FAERS Safety Report 17309827 (Version 1)
Quarter: 2020Q1

REPORT INFORMATION
  Report Type: Spontaneous
  Country: US (occurrence: US)
  Receive Date: 20200123
  Receipt Date: 20200123
  Transmission Date: 20200409
  Serious: No
  Sender: FDA-Public Use
  Company Number: US-ELI_LILLY_AND_COMPANY-US202001010422

PATIENT
  Age: 33 Year
  Sex: Male

DRUGS (3)
  1. LEVEMIR [Concomitant]
     Active Substance: INSULIN DETEMIR
     Indication: TYPE 1 DIABETES MELLITUS
     Route: 065
  2. GLUCAGON. [Suspect]
     Active Substance: GLUCAGON
     Indication: HYPOGLYCAEMIA
     Dosage: 1 MG
     Route: 030
  3. NOVOLOG [Concomitant]
     Active Substance: INSULIN ASPART
     Indication: TYPE 1 DIABETES MELLITUS
     Route: 065

REACTIONS (2)
  - Tremor [Recovered/Resolved]
  - Crying [Recovered/Resolved]
